FAERS Safety Report 18247953 (Version 2)
Quarter: 2021Q1

REPORT INFORMATION
  Report Type: Spontaneous
  Country: US (occurrence: US)
  Receive Date: 20200909
  Receipt Date: 20210205
  Transmission Date: 20210419
  Serious: No
  Sender: FDA-Public Use
  Company Number: US-SA-2020SA242817

PATIENT
  Age: 78 Year
  Sex: Female

DRUGS (1)
  1. DUPIXENT [Suspect]
     Active Substance: DUPILUMAB
     Indication: DERMATITIS ATOPIC
     Dosage: 600 MG
     Route: 048
     Dates: start: 202008

REACTIONS (9)
  - Pruritus [Unknown]
  - Off label use [Unknown]
  - Injection site mass [Unknown]
  - Erythema [Not Recovered/Not Resolved]
  - Mass [Unknown]
  - Dry eye [Unknown]
  - Injection site pain [Unknown]
  - Dermatitis atopic [Unknown]
  - Conjunctival hyperaemia [Unknown]

NARRATIVE: CASE EVENT DATE: 202008
